FAERS Safety Report 9100745 (Version 2)
Quarter: 2013Q1

REPORT INFORMATION
  Report Type: Report from Study
  Country: AT (occurrence: AT)
  Receive Date: 20130122
  Receipt Date: 20130122
  Transmission Date: 20140127
  Serious: Yes (Death, Life-Threatening, Hospitalization)
  Sender: FDA-Public Use
  Company Number: AT-ELI_LILLY_AND_COMPANY-10-11-00079

PATIENT
  Age: 60 Year
  Sex: Female
  Weight: 53 kg

DRUGS (8)
  1. NECITUMUMAB [Suspect]
     Indication: NON-SMALL CELL LUNG CANCER
     Dosage: 800 MG, OTHER
     Route: 042
     Dates: start: 20100406, end: 20100406
  2. PEMETREXED [Suspect]
     Indication: NON-SMALL CELL LUNG CANCER
     Dosage: 775 MG, OTHER
     Route: 042
     Dates: start: 20100406, end: 20100406
  3. CISPLATIN [Suspect]
     Indication: NON-SMALL CELL LUNG CANCER
     Dosage: 116.5 MG, OTHER
     Route: 042
     Dates: start: 20100406, end: 20100406
  4. ACETYLSALICYLIC ACID [Concomitant]
     Indication: ATRIAL FIBRILLATION
     Dosage: 100 MG, UNK
     Dates: start: 20100215
  5. ACTONEL [Concomitant]
     Indication: OSTEOPOROSIS
     Dates: start: 20100219
  6. CALCIUM [Concomitant]
     Indication: OSTEOPOROSIS
     Dates: start: 20100219
  7. TRAMAL [Concomitant]
     Indication: FRACTURE
     Dates: start: 20100215
  8. MOGADON [Concomitant]
     Indication: INSOMNIA
     Dates: start: 19950101

REACTIONS (5)
  - Sepsis [Fatal]
  - Large intestine perforation [Fatal]
  - Peritonitis [Fatal]
  - Multi-organ failure [Fatal]
  - Neutropenia [Recovered/Resolved]
